FAERS Safety Report 18270579 (Version 1)
Quarter: 2020Q3

REPORT INFORMATION
  Report Type: Report from Study
  Country: US (occurrence: US)
  Receive Date: 20200915
  Receipt Date: 20200915
  Transmission Date: 20201103
  Serious: Yes (Other)
  Sender: FDA-Public Use
  Company Number: US-JNJFOC-A-US2017-149533

PATIENT
  Age: 50 Year
  Sex: Female
  Weight: 79.45 kg

DRUGS (4)
  1. TRACLEER [Suspect]
     Active Substance: BOSENTAN
     Indication: PULMONARY ARTERIAL HYPERTENSION
     Dosage: 125 MG, BID
     Route: 048
     Dates: start: 20120710
  2. MULTIVITAMINS                      /00116001/ [Concomitant]
     Active Substance: VITAMINS
  3. REMODULIN [Concomitant]
     Active Substance: TREPROSTINIL
  4. ADCIRCA [Concomitant]
     Active Substance: TADALAFIL

REACTIONS (6)
  - Sarcoidosis [Unknown]
  - Sinus disorder [Unknown]
  - Dyspnoea at rest [Unknown]
  - Scleroderma [Unknown]
  - Sinusitis [Not Recovered/Not Resolved]
  - Blood potassium abnormal [Unknown]

NARRATIVE: CASE EVENT DATE: 20170129
